FAERS Safety Report 9323953 (Version 1)
Quarter: 2013Q2

REPORT INFORMATION
  Report Type: Other
  Country: IN (occurrence: IN)
  Receive Date: 20130603
  Receipt Date: 20130603
  Transmission Date: 20140414
  Serious: Yes (Hospitalization)
  Sender: FDA-Public Use
  Company Number: IN-BRISTOL-MYERS SQUIBB COMPANY-18965152

PATIENT
  Age: 50 Year
  Sex: Male

DRUGS (7)
  1. METFORMIN HCL [Suspect]
     Indication: TYPE 2 DIABETES MELLITUS
     Dosage: UNK:MAY12?MAY12:ONG
  2. CIPROFLOXACIN [Interacting]
     Indication: UROSEPSIS
     Route: 042
     Dates: start: 201205, end: 20120503
  3. OFLOXACIN [Interacting]
     Indication: DIARRHOEA
     Dates: start: 2012, end: 201205
  4. GLICLAZIDE [Interacting]
     Indication: TYPE 2 DIABETES MELLITUS
     Dates: start: 201205
  5. VILDAGLIPTIN [Suspect]
     Indication: TYPE 2 DIABETES MELLITUS
     Dosage: UNK:MAY12?MAY12:ONG
  6. TELMISARTAN [Concomitant]
     Indication: HYPERTENSION
  7. ATORVASTATIN [Concomitant]
     Dosage: AT NIGHT

REACTIONS (2)
  - Hypoglycaemia [Recovered/Resolved]
  - Drug interaction [Recovered/Resolved]
